FAERS Safety Report 12909301 (Version 2)
Quarter: 2017Q1

REPORT INFORMATION
  Report Type: Spontaneous
  Country: HR (occurrence: HR)
  Receive Date: 20161104
  Receipt Date: 20170110
  Transmission Date: 20170428
  Serious: Yes (Life-Threatening, Hospitalization)
  Sender: FDA-Public Use
  Company Number: HR-ASTRAZENECA-2016SF14425

PATIENT
  Age: 22631 Day
  Sex: Female
  Weight: 88 kg

DRUGS (13)
  1. LORISTA H [Suspect]
     Active Substance: HYDROCHLOROTHIAZIDE\LOSARTAN POTASSIUM
     Indication: HYPERTENSION
     Route: 048
     Dates: start: 2015
  2. CONCOR COR [Suspect]
     Active Substance: BISOPROLOL FUMARATE
     Indication: PALPITATIONS
     Route: 048
  3. NEOFEN FORTE [Suspect]
     Active Substance: IBUPROFEN
     Dosage: 400.0MG UNKNOWN
     Route: 048
  4. ZONADIN [Suspect]
     Active Substance: ZOLPIDEM TARTRATE
     Route: 048
     Dates: start: 2012
  5. LORISTA [Suspect]
     Active Substance: LOSARTAN POTASSIUM
     Indication: HYPERTENSION
     Route: 048
     Dates: start: 2015
  6. EUTHYROX [Suspect]
     Active Substance: LEVOTHYROXINE SODIUM
     Indication: HYPOTHYROIDISM
     Route: 048
  7. SEROQUEL XR [Suspect]
     Active Substance: QUETIAPINE FUMARATE
     Indication: MAJOR DEPRESSION
     Route: 048
     Dates: start: 2012
  8. VELAFAX [Suspect]
     Active Substance: VENLAFAXINE HYDROCHLORIDE
     Indication: MAJOR DEPRESSION
     Route: 048
  9. SILYMARIN [Suspect]
     Active Substance: MILK THISTLE
     Indication: DRUG-INDUCED LIVER INJURY
     Route: 048
  10. DICLAC DUO [Suspect]
     Active Substance: DICLOFENAC SODIUM
     Indication: OSTEOARTHRITIS
     Route: 048
  11. LORSILAN [Suspect]
     Active Substance: LORAZEPAM
     Indication: DEPRESSION
     Dosage: 2.5MG UNKNOWN
     Route: 048
     Dates: start: 2012
  12. CONTROLOC [Suspect]
     Active Substance: PANTOPRAZOLE SODIUM
     Indication: DYSPEPSIA
     Dosage: 40.0MG UNKNOWN
     Route: 048
     Dates: start: 201512
  13. CERSON [Suspect]
     Active Substance: NITRAZEPAM
     Indication: MAJOR DEPRESSION
     Route: 048

REACTIONS (3)
  - Peritonitis [Recovered/Resolved]
  - Small intestinal perforation [Recovered/Resolved]
  - Appendicitis [Recovered/Resolved]

NARRATIVE: CASE EVENT DATE: 20161014
